FAERS Safety Report 8780087 (Version 1)
Quarter: 2012Q4

REPORT INFORMATION
  Report Type: 
  Country: US (occurrence: US)
  Receive Date: 20120912
  Receipt Date: 20120912
  Transmission Date: 20130627
  Serious: No
  Sender: FDA-Public Use
  Company Number: US-VERTEX PHARMACEUTICAL INC.-AE-2012-005280

PATIENT
  Age: 52 Year
  Sex: Female
  Weight: 64.55 kg

DRUGS (12)
  1. INCIVEK [Suspect]
     Indication: HEPATITIS C
     Dosage: 750 mg, tid
     Route: 048
     Dates: start: 20120409
  2. PEGASYS [Concomitant]
     Indication: HEPATITIS C
     Dosage: 180 ?g, UNK
     Route: 058
     Dates: start: 20120409
  3. RIBAVIRIN [Concomitant]
     Indication: HEPATITIS C
     Route: 048
     Dates: start: 20120409
  4. AMITRIPTYLINE [Concomitant]
     Route: 048
  5. ATIVAN [Concomitant]
     Indication: ANXIETY
     Dosage: 0.5 mg, UNK
     Route: 048
  6. CALCIUM [Concomitant]
     Route: 048
  7. VITAMIN C [Concomitant]
     Route: 048
  8. VITAMIN E [Concomitant]
     Route: 048
  9. HAIR/NAIL/SKIN VITAMIN [Concomitant]
     Route: 048
  10. LORTAB [Concomitant]
     Indication: PAIN
     Route: 048
  11. AMBIEN CR [Concomitant]
     Dosage: 12.5 mg, UNK
  12. HYDROCODONE/APAP [Concomitant]
     Dosage: UNK mg, UNK

REACTIONS (8)
  - Constipation [Recovered/Resolved]
  - Burning sensation [Unknown]
  - Pain in extremity [Unknown]
  - Throat irritation [Not Recovered/Not Resolved]
  - Stomatitis [Unknown]
  - Anaemia [Unknown]
  - Vomiting [Recovered/Resolved]
  - Nausea [Recovered/Resolved]
